FAERS Safety Report 12560500 (Version 2)
Quarter: 2019Q1

REPORT INFORMATION
  Report Type: Spontaneous
  Country: US (occurrence: US)
  Receive Date: 20160715
  Receipt Date: 20190302
  Transmission Date: 20190417
  Serious: No
  Sender: FDA-Public Use
  Company Number: US-JNJFOC-20160509455

PATIENT
  Sex: Female

DRUGS (2)
  1. WOMENS ROGAINE [Suspect]
     Active Substance: MINOXIDIL
     Route: 061
  2. WOMENS ROGAINE [Suspect]
     Active Substance: MINOXIDIL
     Indication: PRODUCT USED FOR UNKNOWN INDICATION
     Dosage: ONCE ONLY
     Route: 061

REACTIONS (3)
  - Hair texture abnormal [Recovered/Resolved]
  - Product packaging issue [Unknown]
  - Hair disorder [Recovered/Resolved]
